FAERS Safety Report 9311094 (Version 3)
Quarter: 2014Q1

REPORT INFORMATION
  Report Type: Spontaneous
  Country: US (occurrence: US)
  Receive Date: 20130528
  Receipt Date: 20140107
  Transmission Date: 20141002
  Serious: Yes (Hospitalization, Disabling)
  Sender: FDA-Public Use
  Company Number: US-PFIZER INC-2013161093

PATIENT
  Age: 57 Year
  Sex: Female
  Weight: 54.42 kg

DRUGS (6)
  1. RELPAX [Suspect]
     Indication: MIGRAINE
     Dosage: 20 MG, UNK
     Route: 048
  2. RELPAX [Suspect]
     Dosage: UNK, AS NEEDED
     Route: 048
  3. RELPAX [Suspect]
     Dosage: 20 MG, AS NEEDED
     Route: 048
  4. RELPAX [Suspect]
     Dosage: 40 MG, AS NEEDED
     Route: 048
  5. METHADONE [Suspect]
     Dosage: UNK
  6. CLOPIDOGREL [Concomitant]
     Dosage: UNK

REACTIONS (6)
  - Coma [Unknown]
  - Pneumonia [Unknown]
  - Myocardial infarction [Unknown]
  - Mental impairment [Unknown]
  - Malaise [Unknown]
  - Drug ineffective [Unknown]
